FAERS Safety Report 5355377-X (Version None)
Quarter: 2007Q2

REPORT INFORMATION
  Report Type: 
  Country: None (occurrence: None)
  Receive Date: 20070530
  Receipt Date: 20070228
  Transmission Date: 20071010
  Serious: Yes (Other)
  Sender: FDA-Public Use
  Company Number: US200702005785

PATIENT
  Age: 43 Year
  Sex: Male

DRUGS (2)
  1. ZYPREXA [Suspect]
     Dosage: 5 MG, DAILY (1/D), ORAL
     Route: 048
     Dates: start: 19991015, end: 20000101
  2. ALOPURINOL (ALLOPURINOL) [Concomitant]

REACTIONS (7)
  - DIABETES MELLITUS [None]
  - HEADACHE [None]
  - HYPERTENSION [None]
  - SYNCOPE [None]
  - VISION BLURRED [None]
  - WEIGHT DECREASED [None]
  - WEIGHT FLUCTUATION [None]
